FAERS Safety Report 5710711-3 (Version None)
Quarter: 2008Q2

REPORT INFORMATION
  Report Type: 
  Country: None (occurrence: None)
  Receive Date: 20080415
  Receipt Date: 20080331
  Transmission Date: 20081010
  Serious: Yes (Life-Threatening)
  Sender: FDA-Public Use
  Company Number: DSM-2008-00326

PATIENT
  Age: 63 Year
  Sex: Female
  Weight: 63.5 kg

DRUGS (1)
  1. OLMESARTAN MEDOXOMIL(OLMESARTAN MEDOXOMIL)(10 MILLIGRAM, TABLET)(OLMES [Suspect]
     Indication: HYPERTENSION
     Dosage: 10 MG (10 MG, 1 IN 1 D), ORAL
     Route: 048
     Dates: start: 20080115, end: 20080206

REACTIONS (2)
  - ANXIETY [None]
  - SUICIDAL IDEATION [None]
